FAERS Safety Report 8436352-5 (Version None)
Quarter: 2012Q2

REPORT INFORMATION
  Report Type: 
  Country: None (occurrence: None)
  Receive Date: 20120614
  Receipt Date: 20120605
  Transmission Date: 20120825
  Serious: Yes (Hospitalization)
  Sender: FDA-Public Use
  Company Number: US-ASTRAZENECA-2012SE29405

PATIENT
  Age: 75 Year
  Sex: Female

DRUGS (3)
  1. PRILOSEC [Suspect]
     Route: 048
  2. NEXIUM [Concomitant]
  3. PRILOSEC OTC [Suspect]
     Route: 048

REACTIONS (6)
  - HAEMATEMESIS [None]
  - DYSPEPSIA [None]
  - HAEMORRHAGE [None]
  - GASTRIC HAEMORRHAGE [None]
  - GASTROINTESTINAL INFECTION [None]
  - RENAL PAIN [None]
